FAERS Safety Report 23257381 (Version 4)
Quarter: 2023Q4

REPORT INFORMATION
  Report Type: Report from Study
  Country: CA (occurrence: CA)
  Receive Date: 20231204
  Receipt Date: 20231221
  Transmission Date: 20240110
  Serious: Yes (Death, Other)
  Sender: FDA-Public Use
  Company Number: CA-002147023-NVSC2023CA256561

PATIENT
  Sex: Female

DRUGS (1)
  1. MEKINIST [Suspect]
     Active Substance: TRAMETINIB DIMETHYL SULFOXIDE
     Indication: Ovarian cancer
     Dosage: 2 MG, QD (2 MG X 3 BOTTLES (90 DOSES))
     Route: 048
     Dates: start: 20221116, end: 20230214

REACTIONS (4)
  - Death [Fatal]
  - Ovarian cancer recurrent [Unknown]
  - Peritoneal disorder [Unknown]
  - Urosepsis [Unknown]

NARRATIVE: CASE EVENT DATE: 20230315
